FAERS Safety Report 13108652 (Version 1)
Quarter: 2017Q1

REPORT INFORMATION
  Report Type: Spontaneous
  Country: US (occurrence: US)
  Receive Date: 20170111
  Receipt Date: 20170111
  Transmission Date: 20170428
  Serious: Yes (Hospitalization, Other)
  Sender: FDA-Public Use
  Company Number: None

PATIENT
  Age: 35 Year
  Sex: Female
  Weight: 82.35 kg

DRUGS (3)
  1. METHAMIZOLE [Concomitant]
  2. LEAN SHAKE (GNC PROTEIN POWDER) [Concomitant]
  3. TOPAMAX [Suspect]
     Active Substance: TOPIRAMATE
     Indication: DECREASED APPETITE
     Dosage: ?          QUANTITY:1 TABLET(S);?
     Route: 048
     Dates: start: 20161206, end: 20161216

REACTIONS (9)
  - Heart rate increased [None]
  - Agitation [None]
  - Logorrhoea [None]
  - Psychotic disorder [None]
  - Memory impairment [None]
  - Mania [None]
  - Drug dose omission [None]
  - Hyperthyroidism [None]
  - Hypertension [None]

NARRATIVE: CASE EVENT DATE: 20161219
